FAERS Safety Report 7585383-6 (Version None)
Quarter: 2011Q3

REPORT INFORMATION
  Report Type: 
  Country: None (occurrence: None)
  Receive Date: 20110701
  Receipt Date: 20110620
  Transmission Date: 20111222
  Serious: Yes (Other)
  Sender: FDA-Public Use
  Company Number: US-BAYER-200938974NA

PATIENT
  Age: 64 Year
  Sex: Male
  Weight: 100 kg

DRUGS (17)
  1. TRASYLOL [Suspect]
     Indication: CARDIAC OPERATION
     Dosage: 200 ML, UNK, LOADING DOSE
     Route: 042
     Dates: start: 20030919
  2. METOPROLOL TARTRATE [Concomitant]
     Dosage: UNK
     Route: 048
     Dates: start: 20010101, end: 20090101
  3. LIDOCAINE [Concomitant]
     Dosage: 100 MG, UNK
     Dates: start: 20030919, end: 20030919
  4. HESPAN IN EXCEL PLASTIC CONTAINER [Concomitant]
     Dosage: 500 ML, UNK
     Route: 042
     Dates: start: 20030919, end: 20030919
  5. HEPARIN [Concomitant]
     Dosage: 60000 U, UNK
     Dates: start: 20030919, end: 20030919
  6. PROTAMINE SULFATE [Concomitant]
     Dosage: 500 MG, UNK
     Dates: start: 20030919, end: 20030919
  7. VANCOMYCIN [Concomitant]
     Dosage: UNK
     Route: 042
     Dates: start: 20030910
  8. MANNITOL [Concomitant]
     Dosage: UNK
     Dates: start: 20030919, end: 20030919
  9. NORVASC [Concomitant]
     Dosage: 10 MG / DAILY
     Route: 048
  10. LOTENSIN [Concomitant]
     Dosage: 20 MG / DAILY
     Route: 048
  11. CARDIZEM LA [Concomitant]
     Dosage: 240 MG / DAILY
     Route: 048
  12. CALCIUM CHLORIDE [Concomitant]
     Dosage: 1 G, UNK
     Dates: start: 20030919, end: 20030919
  13. DIOVAN [Concomitant]
     Dosage: 160 MG / DAILY
     Route: 048
  14. SODIUM BICARBONATE [Concomitant]
     Dosage: 50 MEQ, UNK
     Dates: start: 20030919, end: 20030919
  15. TRASYLOL [Suspect]
     Indication: AORTIC VALVE REPLACEMENT
     Dosage: 1.5 ML, ONCE, TEST DOSE
     Route: 042
     Dates: start: 20030919
  16. COUMADIN [Concomitant]
     Dosage: UNK
     Route: 048
     Dates: start: 20000101
  17. VERSED [Concomitant]
     Dosage: UNK
     Dates: start: 20030919, end: 20030919

REACTIONS (10)
  - ANXIETY [None]
  - RENAL IMPAIRMENT [None]
  - PAIN [None]
  - INJURY [None]
  - RENAL INJURY [None]
  - RENAL FAILURE [None]
  - EMOTIONAL DISTRESS [None]
  - FEAR [None]
  - STRESS [None]
  - UNEVALUABLE EVENT [None]
